FAERS Safety Report 23867501 (Version 4)
Quarter: 2024Q4

REPORT INFORMATION
  Report Type: Spontaneous
  Country: US (occurrence: US)
  Receive Date: 20240517
  Receipt Date: 20241017
  Transmission Date: 20250114
  Serious: No
  Sender: PFIZER
  Company Number: US-PFIZER INC-202400107733

PATIENT
  Age: 71 Year
  Sex: Male
  Weight: 79.38 kg

DRUGS (14)
  1. XELJANZ XR [Suspect]
     Active Substance: TOFACITINIB CITRATE
     Indication: Rheumatoid arthritis
     Dosage: 11 MG, 1X/DAY
     Route: 048
     Dates: start: 202402, end: 2024
  2. XELJANZ XR [Suspect]
     Active Substance: TOFACITINIB CITRATE
     Dosage: 5 MG
     Dates: start: 2024, end: 2024
  3. GABAPENTIN [Concomitant]
     Active Substance: GABAPENTIN
     Indication: Spinal osteoarthritis
     Dosage: 300 MG, 3X/DAY
  4. ATORVASTATIN [Concomitant]
     Active Substance: ATORVASTATIN
     Dosage: UNK
  5. TADALAFIL [Concomitant]
     Active Substance: TADALAFIL
     Indication: Prostatomegaly
     Dosage: 5 MG, 1X/DAY
  6. LOSARTAN [Concomitant]
     Active Substance: LOSARTAN
     Indication: Hypertension
     Dosage: 100 MG, 1X/DAY
  7. FAMOTIDINE [Concomitant]
     Active Substance: FAMOTIDINE
     Dosage: 40 MG, 1X/DAY
  8. DULERA [Concomitant]
     Active Substance: FORMOTEROL FUMARATE DIHYDRATE\MOMETASONE FUROATE
     Indication: Chronic obstructive pulmonary disease
     Dosage: UNK
  9. ALBUTEROL [Concomitant]
     Active Substance: ALBUTEROL
     Indication: Chronic obstructive pulmonary disease
     Dosage: UNK
  10. FLUTICASONE [Concomitant]
     Active Substance: FLUTICASONE
     Dosage: UNK
  11. BENEFIBER [Concomitant]
     Active Substance: STARCH, WHEAT
     Dosage: UNK
  12. VITAMIN D3 [Concomitant]
     Active Substance: CHOLECALCIFEROL
     Dosage: UNK
  13. BIOTIN [Concomitant]
     Active Substance: BIOTIN
     Dosage: UNK
  14. HYDROCODONE [Concomitant]
     Active Substance: HYDROCODONE
     Indication: Pain
     Dosage: 15 MG, DAILY

REACTIONS (2)
  - Sinusitis [Unknown]
  - Diarrhoea [Not Recovered/Not Resolved]

NARRATIVE: CASE EVENT DATE: 20240101
